FAERS Safety Report 6297870-1 (Version None)
Quarter: 2009Q3

REPORT INFORMATION
  Report Type: 
  Country: None (occurrence: None)
  Receive Date: 20090804
  Receipt Date: 20090804
  Transmission Date: 20100115
  Serious: Yes (Death)
  Sender: FDA-Public Use
  Company Number: None

PATIENT
  Sex: Female
  Weight: 68.22 kg

DRUGS (3)
  1. REVLIMID [Suspect]
     Indication: MULTIPLE MYELOMA
     Dosage: 25 MG, THESDAY/THURSDAY, PO
     Route: 048
     Dates: start: 20090701, end: 20090723
  2. ALLOPURINOL [Concomitant]
  3. LEVAQUIN [Concomitant]

REACTIONS (21)
  - ANAEMIA [None]
  - BACTERAEMIA [None]
  - BLOOD CALCIUM INCREASED [None]
  - BLOOD CULTURE POSITIVE [None]
  - DYSPNOEA [None]
  - ESCHERICHIA INFECTION [None]
  - GENERAL PHYSICAL HEALTH DETERIORATION [None]
  - HAEMATOCRIT DECREASED [None]
  - HAEMOGLOBIN DECREASED [None]
  - HAEMORRHAGE INTRACRANIAL [None]
  - HYDROCEPHALUS [None]
  - HYPOTENSION [None]
  - MENTAL STATUS CHANGES [None]
  - MULTI-ORGAN FAILURE [None]
  - NEUTROPENIA [None]
  - RENAL FAILURE CHRONIC [None]
  - RESPIRATORY FAILURE [None]
  - STAPHYLOCOCCAL INFECTION [None]
  - TACHYCARDIA [None]
  - THROMBOCYTOPENIA [None]
  - UNRESPONSIVE TO STIMULI [None]
